FAERS Safety Report 5638775-6 (Version None)
Quarter: 2008Q1

REPORT INFORMATION
  Report Type: 
  Country: None (occurrence: None)
  Receive Date: 20080226
  Receipt Date: 20080215
  Transmission Date: 20080703
  Serious: Yes (Hospitalization)
  Sender: FDA-Public Use
  Company Number: US-WYE-H02704108

PATIENT
  Sex: Female

DRUGS (3)
  1. PREMPRO [Suspect]
  2. PROGESTERONE [Suspect]
  3. PREMARIN [Suspect]

REACTIONS (2)
  - CORONARY ARTERY DISEASE [None]
  - ENDOMETRIAL HYPERPLASIA [None]
